FAERS Safety Report 8561103-3 (Version None)
Quarter: 2012Q3

REPORT INFORMATION
  Report Type: 
  Country: None (occurrence: None)
  Receive Date: 20120802
  Receipt Date: 20120521
  Transmission Date: 20120928
  Serious: No
  Sender: FDA-Public Use
  Company Number: US-BRISTOL-MYERS SQUIBB COMPANY-16607590

PATIENT
  Sex: Male

DRUGS (3)
  1. NORVIR [Suspect]
     Dates: start: 20120401, end: 20120101
  2. REYATAZ [Suspect]
     Dates: start: 20120401, end: 20120101
  3. TRUVADA [Suspect]
     Dates: start: 20120401, end: 20120101

REACTIONS (1)
  - SKIN DISCOLOURATION [None]
